FAERS Safety Report 8104471-9 (Version None)
Quarter: 2012Q1

REPORT INFORMATION
  Report Type: 
  Country: None (occurrence: None)
  Receive Date: 20120201
  Receipt Date: 20120126
  Transmission Date: 20120608
  Serious: Yes (Other)
  Sender: FDA-Public Use
  Company Number: US-ABBOTT-12P-163-0898577-00

PATIENT
  Age: 39 Year
  Sex: Male

DRUGS (4)
  1. DULCOLAX [Concomitant]
     Indication: CONSTIPATION PROPHYLAXIS
  2. DULCOLAX [Concomitant]
  3. CIPROFLOXACIN [Concomitant]
     Indication: PRODUCT USED FOR UNKNOWN INDICATION
  4. HUMIRA [Suspect]
     Indication: CROHN'S DISEASE
     Dates: start: 20070101

REACTIONS (8)
  - RENAL PAIN [None]
  - BLADDER SPASM [None]
  - MEDICAL DEVICE PAIN [None]
  - OBSTRUCTIVE UROPATHY [None]
  - HYPOVITAMINOSIS [None]
  - OSTEOPOROSIS [None]
  - RHEUMATOID ARTHRITIS [None]
  - NEPHROLITHIASIS [None]
